FAERS Safety Report 20671649 (Version 1)
Quarter: 2022Q2

REPORT INFORMATION
  Report Type: Spontaneous
  Country: AU (occurrence: AU)
  Receive Date: 20220404
  Receipt Date: 20220404
  Transmission Date: 20220721
  Serious: Yes (Other)
  Sender: FDA-Public Use
  Company Number: AU-ALKEM LABORATORIES LIMITED-AU-ALKEM-2022-02170

PATIENT
  Age: 32 Year
  Sex: Female

DRUGS (1)
  1. VENLAFAXINE [Suspect]
     Active Substance: VENLAFAXINE HYDROCHLORIDE
     Indication: Major depression
     Dosage: UNK
     Route: 065

REACTIONS (9)
  - Serotonin syndrome [Recovered/Resolved]
  - Drug interaction [Unknown]
  - Agitation [Recovered/Resolved]
  - Pyrexia [Recovered/Resolved]
  - Confusional state [Recovered/Resolved]
  - Hyperhidrosis [Recovered/Resolved]
  - Tachypnoea [Recovered/Resolved]
  - Tachycardia [Recovered/Resolved]
  - Hypertension [Recovered/Resolved]
